FAERS Safety Report 16315675 (Version 1)
Quarter: 2019Q2

REPORT INFORMATION
  Report Type: Spontaneous
  Country: SN (occurrence: SN)
  Receive Date: 20190515
  Receipt Date: 20190515
  Transmission Date: 20190711
  Serious: Yes (Other)
  Sender: FDA-Public Use
  Company Number: PHHY2019SN106113

PATIENT
  Age: 29 Year
  Sex: Female

DRUGS (1)
  1. BROMOCRIPTINE [Suspect]
     Active Substance: BROMOCRIPTINE
     Indication: BREAST ENLARGEMENT
     Route: 065

REACTIONS (3)
  - Therapy non-responder [Unknown]
  - Maternal exposure during pregnancy [Unknown]
  - Breast enlargement [Recovering/Resolving]
